FAERS Safety Report 6877075-3 (Version None)
Quarter: 2010Q3

REPORT INFORMATION
  Report Type: 
  Country: None (occurrence: None)
  Receive Date: 20100727
  Receipt Date: 20100727
  Transmission Date: 20110219
  Serious: Yes (Other)
  Sender: FDA-Public Use
  Company Number: None

PATIENT
  Age: 55 Year
  Sex: Female
  Weight: 53.978 kg

DRUGS (2)
  1. LATISSE [Suspect]
     Dosage: EYE LIDS NIGHTLY
     Dates: start: 20100115, end: 20100726
  2. LUMIGAN [Suspect]

REACTIONS (1)
  - EYE DISORDER [None]
